FAERS Safety Report 9100979 (Version 2)
Quarter: 2013Q1

REPORT INFORMATION
  Report Type: Spontaneous
  Country: US (occurrence: US)
  Receive Date: 20130214
  Receipt Date: 20130328
  Transmission Date: 20140127
  Serious: No
  Sender: FDA-Public Use
  Company Number: US-PFIZER INC-2013059112

PATIENT
  Age: 65 Year
  Sex: Female

DRUGS (2)
  1. ALAVERT [Suspect]
     Dosage: UNK
  2. BENADRYL [Suspect]
     Dosage: UNK

REACTIONS (2)
  - Drug effect incomplete [Unknown]
  - Urticaria [Unknown]
